FAERS Safety Report 25975916 (Version 1)
Quarter: 2025Q4

REPORT INFORMATION
  Report Type: Spontaneous
  Country: EU (occurrence: EU)
  Receive Date: 20251029
  Receipt Date: 20251029
  Transmission Date: 20260117
  Serious: Yes (Other)
  Sender: MYLAN
  Company Number: None

PATIENT
  Age: 37 Year
  Sex: Male

DRUGS (8)
  1. VENLAFAXINE HYDROCHLORIDE [Suspect]
     Active Substance: VENLAFAXINE HYDROCHLORIDE
     Indication: Depression
     Dosage: UNK (STRENGTH: UNKNOWN.DOSAGE: UNKNOWN.)
  2. VENLAFAXINE HYDROCHLORIDE [Suspect]
     Active Substance: VENLAFAXINE HYDROCHLORIDE
     Indication: Anxiety
     Dosage: UNK (STRENGTH: UNKNOWN.DOSAGE: UNKNOWN.)
     Route: 065
  3. VENLAFAXINE HYDROCHLORIDE [Suspect]
     Active Substance: VENLAFAXINE HYDROCHLORIDE
     Dosage: UNK (STRENGTH: UNKNOWN.DOSAGE: UNKNOWN.)
     Route: 065
  4. VENLAFAXINE HYDROCHLORIDE [Suspect]
     Active Substance: VENLAFAXINE HYDROCHLORIDE
     Dosage: UNK (STRENGTH: UNKNOWN.DOSAGE: UNKNOWN.)
  5. SERTRALINE [Suspect]
     Active Substance: SERTRALINE HYDROCHLORIDE
     Indication: Depression
     Dosage: UNK (STRENGTH: UNKNOWN.DOSAGE: UNKNOWN.)
  6. SERTRALINE [Suspect]
     Active Substance: SERTRALINE HYDROCHLORIDE
     Indication: Anxiety
     Dosage: UNK (STRENGTH: UNKNOWN.DOSAGE: UNKNOWN.)
     Route: 065
  7. SERTRALINE [Suspect]
     Active Substance: SERTRALINE HYDROCHLORIDE
     Dosage: UNK (STRENGTH: UNKNOWN.DOSAGE: UNKNOWN.)
     Route: 065
  8. SERTRALINE [Suspect]
     Active Substance: SERTRALINE HYDROCHLORIDE
     Dosage: UNK (STRENGTH: UNKNOWN.DOSAGE: UNKNOWN.)

REACTIONS (5)
  - Bipolar disorder [Unknown]
  - Hypomania [Unknown]
  - Headache [Unknown]
  - Depression [Unknown]
  - Insomnia [Unknown]
